FAERS Safety Report 18685183 (Version 7)
Quarter: 2021Q4

REPORT INFORMATION
  Report Type: Report from Study
  Country: US (occurrence: US)
  Receive Date: 20201230
  Receipt Date: 20211223
  Transmission Date: 20220303
  Serious: Yes (Other)
  Sender: FDA-Public Use
  Company Number: US-NOVARTISPH-NVSC2020US345368

PATIENT
  Age: 63 Year
  Sex: Male

DRUGS (7)
  1. ENTRESTO [Suspect]
     Active Substance: SACUBITRIL\VALSARTAN
     Indication: Product used for unknown indication
     Dosage: 50 MG ( 24/26 MG), BID
     Route: 048
  2. ENTRESTO [Suspect]
     Active Substance: SACUBITRIL\VALSARTAN
     Dosage: 50 MG (24.26 MG), QD
     Route: 048
  3. ENTRESTO [Suspect]
     Active Substance: SACUBITRIL\VALSARTAN
     Dosage: 50 MG (26/24MG), BID
     Route: 048
  4. ENTRESTO [Suspect]
     Active Substance: SACUBITRIL\VALSARTAN
     Dosage: 100 MG, BID(49/51 MG)
     Route: 048
     Dates: start: 202012
  5. UNSPECIFIED INGREDIENT [Suspect]
     Active Substance: UNSPECIFIED INGREDIENT
     Indication: Product used for unknown indication
     Dosage: UNK
     Route: 065
  6. FUROSEMIDE [Concomitant]
     Active Substance: FUROSEMIDE
     Indication: Product used for unknown indication
     Dosage: UNK
     Route: 065
  7. METFORMIN [Concomitant]
     Active Substance: METFORMIN HYDROCHLORIDE
     Indication: Product used for unknown indication
     Dosage: UNK
     Route: 065

REACTIONS (16)
  - Pericardial effusion [Unknown]
  - Dyspepsia [Recovered/Resolved]
  - Fluid retention [Unknown]
  - Nasal congestion [Recovering/Resolving]
  - Chest pain [Recovering/Resolving]
  - Dry throat [Recovering/Resolving]
  - Dehydration [Recovering/Resolving]
  - Insomnia [Recovered/Resolved]
  - Muscle spasms [Recovering/Resolving]
  - Hypotension [Unknown]
  - Dizziness [Unknown]
  - Cough [Recovered/Resolved]
  - Hypersensitivity [Not Recovered/Not Resolved]
  - Cough [Not Recovered/Not Resolved]
  - Inappropriate schedule of product administration [Unknown]
  - Underdose [Unknown]

NARRATIVE: CASE EVENT DATE: 20201201
